FAERS Safety Report 9940987 (Version 2)
Quarter: 2014Q1

REPORT INFORMATION
  Report Type: Spontaneous
  Country: US (occurrence: US)
  Receive Date: 20140303
  Receipt Date: 20140306
  Transmission Date: 20141002
  Serious: Yes (Hospitalization)
  Sender: FDA-Public Use
  Company Number: US-RB-063326-14

PATIENT
  Age: 42 Year
  Sex: Male

DRUGS (2)
  1. MUCINEX D [Suspect]
     Indication: PRODUCT USED FOR UNKNOWN INDICATION
     Dosage: PATIENT TOOK 1 TABLET 1 TIME AT 6:00 P.M. ON 09-FEB-2014.
     Route: 048
     Dates: start: 20140209
  2. CLARITIN D [Concomitant]
     Indication: PRODUCT USED FOR UNKNOWN INDICATION

REACTIONS (5)
  - Vertigo [Recovering/Resolving]
  - Dizziness [Recovering/Resolving]
  - Balance disorder [Recovering/Resolving]
  - Cold sweat [Recovering/Resolving]
  - Vomiting [Recovering/Resolving]
